FAERS Safety Report 13366038 (Version 1)
Quarter: 2017Q1

REPORT INFORMATION
  Report Type: Spontaneous
  Country: US (occurrence: US)
  Receive Date: 20170323
  Receipt Date: 20170323
  Transmission Date: 20170429
  Serious: Yes (Death, Life-Threatening, Hospitalization)
  Sender: FDA-Public Use
  Company Number: US-SA-2017SA048728

PATIENT
  Age: 69 Year
  Sex: Male
  Weight: 66.5 kg

DRUGS (19)
  1. PREDNISONE. [Concomitant]
     Active Substance: PREDNISONE
     Route: 065
     Dates: start: 20161118
  2. ABIRATERONE [Suspect]
     Active Substance: ABIRATERONE
     Indication: SEPSIS
     Route: 065
     Dates: start: 20161118
  3. ZOFRAN [Concomitant]
     Active Substance: ONDANSETRON HYDROCHLORIDE
     Indication: NAUSEA
     Dosage: FREQUENCY EVERY EIGHT HOURS PRN
     Route: 048
     Dates: start: 20170119
  4. ABIRATERONE [Suspect]
     Active Substance: ABIRATERONE
     Indication: SEPSIS
     Route: 065
     Dates: start: 20170110
  5. LUPRON [Concomitant]
     Active Substance: LEUPROLIDE ACETATE
     Indication: HORMONE THERAPY
     Dosage: FREQUENCY EVERY THREE MONTHS.
     Route: 030
     Dates: start: 201506
  6. MAGNESIUM [Concomitant]
     Active Substance: MAGNESIUM
     Indication: SUPPLEMENTATION THERAPY
     Route: 048
     Dates: start: 201601
  7. PREDNISONE. [Concomitant]
     Active Substance: PREDNISONE
     Route: 065
     Dates: start: 20170310, end: 20170310
  8. JEVTANA [Suspect]
     Active Substance: CABAZITAXEL
     Route: 042
     Dates: start: 20170209
  9. CARBOPLATIN. [Suspect]
     Active Substance: CARBOPLATIN
     Route: 042
     Dates: start: 20170302
  10. ABIRATERONE [Suspect]
     Active Substance: ABIRATERONE
     Indication: SEPSIS
     Route: 065
     Dates: start: 20170310, end: 20170310
  11. VITAMIN D NOS/CALCIUM CARBONATE [Concomitant]
     Indication: SUPPLEMENTATION THERAPY
     Route: 048
     Dates: start: 201606
  12. LEVOTHYROXINE. [Concomitant]
     Active Substance: LEVOTHYROXINE
     Indication: HYPOTHYROIDISM
     Route: 048
     Dates: start: 201603
  13. JEVTANA [Suspect]
     Active Substance: CABAZITAXEL
     Route: 042
     Dates: start: 20170119
  14. JEVTANA [Suspect]
     Active Substance: CABAZITAXEL
     Route: 042
     Dates: start: 20170302
  15. CARBOPLATIN. [Suspect]
     Active Substance: CARBOPLATIN
     Route: 042
     Dates: start: 20170209
  16. DEXAMETHASONE. [Concomitant]
     Active Substance: DEXAMETHASONE
     Indication: NAUSEA
     Dosage: FREQUENCY TWICE DAILY FOR 03 DAYS.
     Route: 048
     Dates: start: 20170209
  17. REGLAN [Concomitant]
     Active Substance: METOCLOPRAMIDE HYDROCHLORIDE
     Indication: NAUSEA
     Dosage: FREQUENCY TID BEFORE MEALS
     Route: 048
     Dates: start: 20170209
  18. CARBOPLATIN. [Suspect]
     Active Substance: CARBOPLATIN
     Route: 042
     Dates: start: 20170119
  19. PREDNISONE. [Concomitant]
     Active Substance: PREDNISONE
     Route: 065
     Dates: start: 20170110

REACTIONS (8)
  - Hypotension [Not Recovered/Not Resolved]
  - Confusional state [Not Recovered/Not Resolved]
  - Respiratory failure [Not Recovered/Not Resolved]
  - Full blood count decreased [Not Recovered/Not Resolved]
  - Fatigue [Not Recovered/Not Resolved]
  - Sepsis [Fatal]
  - Pyrexia [Not Recovered/Not Resolved]
  - Multiple organ dysfunction syndrome [Fatal]

NARRATIVE: CASE EVENT DATE: 20170310
